FAERS Safety Report 9114893 (Version 2)
Quarter: 2013Q2

REPORT INFORMATION
  Report Type: Spontaneous
  Country: US (occurrence: US)
  Receive Date: 20130128
  Receipt Date: 20130408
  Transmission Date: 20140414
  Serious: Yes (Hospitalization, Other)
  Sender: FDA-Public Use
  Company Number: US-ELI_LILLY_AND_COMPANY-US201301005770

PATIENT
  Age: 81 Year
  Sex: Male
  Weight: 123.81 kg

DRUGS (3)
  1. HUMULIN REGULAR [Suspect]
     Indication: DIABETES MELLITUS
     Dosage: UNK, PRN
  2. LANTUS [Concomitant]
     Dosage: UNK, UNKNOWN
  3. WARFARIN [Concomitant]

REACTIONS (4)
  - Prostatic haemorrhage [Recovered/Resolved]
  - Bladder cancer [Unknown]
  - Dementia Alzheimer^s type [Unknown]
  - Benign prostatic hyperplasia [Unknown]
